FAERS Safety Report 16541329 (Version 1)
Quarter: 2019Q3

REPORT INFORMATION
  Report Type: Spontaneous
  Country: US (occurrence: US)
  Receive Date: 20190708
  Receipt Date: 20190708
  Transmission Date: 20191004
  Serious: No
  Sender: FDA-Public Use
  Company Number: US-NEUROCRINE BIOSCIENCES INC.-2019NBI01712

PATIENT
  Age: 32 Year
  Sex: Female
  Weight: 113.5 kg

DRUGS (1)
  1. INGREZZA [Suspect]
     Active Substance: VALBENAZINE
     Indication: TARDIVE DYSKINESIA
     Dates: start: 20190624

REACTIONS (4)
  - Feeling abnormal [Not Recovered/Not Resolved]
  - Dizziness [Not Recovered/Not Resolved]
  - Maternal exposure during pregnancy [Unknown]
  - Genital burning sensation [Not Recovered/Not Resolved]

NARRATIVE: CASE EVENT DATE: 20190624
